FAERS Safety Report 13640194 (Version 4)
Quarter: 2017Q4

REPORT INFORMATION
  Report Type: Spontaneous
  Country: VE (occurrence: VE)
  Receive Date: 20170609
  Receipt Date: 20171103
  Transmission Date: 20180320
  Serious: Yes (Death, Other)
  Sender: FDA-Public Use
  Company Number: VE-SA-2017SA102071

PATIENT
  Age: 19 Year
  Sex: Male
  Weight: 30 kg

DRUGS (3)
  1. PHENOBARBITAL. [Concomitant]
     Active Substance: PHENOBARBITAL
     Indication: PARTIAL SEIZURES
     Dosage: DOSE: 150 MG?
     Route: 065
     Dates: start: 2007
  2. MYOZYME [Suspect]
     Active Substance: ALGLUCOSIDASE ALFA
     Indication: GLYCOGEN STORAGE DISEASE TYPE II
     Route: 041
     Dates: start: 19970614, end: 20171005
  3. VALPROIC ACID. [Concomitant]
     Active Substance: VALPROIC ACID
     Indication: PARTIAL SEIZURES
     Dosage: DOSE: 500 MG
     Route: 065
     Dates: start: 2007

REACTIONS (11)
  - Pyrexia [Recovered/Resolved]
  - Inflammation [Recovered/Resolved]
  - Sputum discoloured [Recovered/Resolved]
  - Malnutrition [Fatal]
  - Cough [Recovered/Resolved]
  - C-reactive protein increased [Recovered/Resolved]
  - Pneumonia klebsiella [Recovered/Resolved]
  - Pseudomonas test positive [Unknown]
  - Cardiac failure [Fatal]
  - Increased bronchial secretion [Recovered/Resolved]
  - Off label use [Unknown]

NARRATIVE: CASE EVENT DATE: 20170427
